FAERS Safety Report 10079174 (Version 1)
Quarter: 2014Q2

REPORT INFORMATION
  Report Type: Spontaneous
  Country: US (occurrence: US)
  Receive Date: 20140415
  Receipt Date: 20140415
  Transmission Date: 20141212
  Serious: No
  Sender: FDA-Public Use
  Company Number: US-009507513-1403USA013597

PATIENT
  Age: 88 Year
  Sex: Female

DRUGS (2)
  1. CLARITIN REDITABS 12HR [Suspect]
     Indication: CANDIDA INFECTION
     Dosage: 5 MG, BID
     Route: 048
     Dates: start: 201403
  2. CLARITIN REDITABS 12HR [Suspect]
     Dosage: 5 MG, BID
     Route: 048
     Dates: start: 20140317

REACTIONS (4)
  - Asthenia [Not Recovered/Not Resolved]
  - Somnolence [Not Recovered/Not Resolved]
  - Accidental overdose [Unknown]
  - Off label use [Unknown]
